FAERS Safety Report 5350962-3 (Version None)
Quarter: 2007Q2

REPORT INFORMATION
  Report Type: 
  Country: None (occurrence: None)
  Receive Date: 20070608
  Receipt Date: 20070604
  Transmission Date: 20071010
  Serious: Yes (Other)
  Sender: FDA-Public Use
  Company Number: US-JNJFOC-20070601253

PATIENT
  Age: 47 Year
  Sex: Female

DRUGS (1)
  1. ULTRAM [Suspect]
     Indication: PAIN
     Dosage: AT BEDTIME
     Route: 048

REACTIONS (3)
  - EYE PAIN [None]
  - OPTIC NERVE INJURY [None]
  - VISUAL ACUITY REDUCED [None]
